FAERS Safety Report 9509889 (Version 2)
Quarter: 2013Q3

REPORT INFORMATION
  Report Type: Spontaneous
  Country: US (occurrence: US)
  Receive Date: 20130909
  Receipt Date: 20130909
  Transmission Date: 20140515
  Serious: No
  Sender: FDA-Public Use
  Company Number: US-BRISTOL-MYERS SQUIBB COMPANY-18827931

PATIENT
  Age: 29 Year
  Sex: Female

DRUGS (4)
  1. ABILIFY [Suspect]
     Indication: DEPRESSION
     Route: 048
     Dates: start: 20120911
  2. ABILIFY [Suspect]
     Indication: MANIA
     Route: 048
     Dates: start: 20120911
  3. PROZAC [Concomitant]
  4. TRIAZOLAM [Concomitant]
     Dosage: AT BED TIME
     Route: 048

REACTIONS (1)
  - Drug screen positive [Unknown]
